FAERS Safety Report 22245593 (Version 1)
Quarter: 2023Q2

REPORT INFORMATION
  Report Type: Spontaneous
  Country: US (occurrence: None)
  Receive Date: 20230423
  Receipt Date: 20230423
  Transmission Date: 20230721
  Serious: Yes (Hospitalization)
  Sender: FDA-Public Use
  Company Number: None

PATIENT
  Age: 42 Year
  Sex: Male
  Weight: 129.6 kg

DRUGS (1)
  1. OZEMPIC [Suspect]
     Active Substance: SEMAGLUTIDE
     Indication: Blood glucose abnormal
     Dates: start: 20230418

REACTIONS (2)
  - Abdominal pain [None]
  - Lipase increased [None]

NARRATIVE: CASE EVENT DATE: 20230420
